FAERS Safety Report 17029899 (Version 1)
Quarter: 2019Q4

REPORT INFORMATION
  Report Type: Spontaneous
  Country: US (occurrence: US)
  Receive Date: 20191011
  Receipt Date: 20191011
  Transmission Date: 20200122
  Serious: No
  Sender: FDA-Public Use
  Company Number: None

PATIENT
  Age: 71 Year
  Sex: Female

DRUGS (1)
  1. REPATHA [Suspect]
     Active Substance: EVOLOCUMAB
     Route: 058
     Dates: start: 20190805, end: 20191002

REACTIONS (7)
  - Amnesia [None]
  - Confusional state [None]
  - Therapy cessation [None]
  - Muscle spasms [None]
  - Visual impairment [None]
  - Diabetes mellitus inadequate control [None]
  - Arthralgia [None]

NARRATIVE: CASE EVENT DATE: 20191011
